FAERS Safety Report 6125691-9 (Version None)
Quarter: 2009Q1

REPORT INFORMATION
  Report Type: 
  Country: None (occurrence: None)
  Receive Date: 20090317
  Receipt Date: 20090302
  Transmission Date: 20090719
  Serious: Yes (Hospitalization, Other)
  Sender: FDA-Public Use
  Company Number: 2009S1003635

PATIENT
  Age: 36 Year
  Sex: Male

DRUGS (3)
  1. VALPROIC ACID [Suspect]
     Indication: BIPOLAR DISORDER
     Dosage: 500 MG, DAILY, 1500 MG, DAILY;
  2. LAMOTRIGINE [Suspect]
     Indication: BIPOLAR DISORDER
     Dosage: 400 MG DAILY;
  3. CLONAZEPAM [Concomitant]

REACTIONS (7)
  - COGNITIVE DISORDER [None]
  - DELUSION OF GRANDEUR [None]
  - DEPRESSED LEVEL OF CONSCIOUSNESS [None]
  - DISORIENTATION [None]
  - DRUG TOXICITY [None]
  - HALLUCINATION, VISUAL [None]
  - THERAPY REGIMEN CHANGED [None]
